FAERS Safety Report 4986834-3 (Version None)
Quarter: 2006Q2

REPORT INFORMATION
  Report Type: 
  Country: None (occurrence: None)
  Receive Date: 20060428
  Receipt Date: 20051004
  Transmission Date: 20061013
  Serious: Yes (Hospitalization)
  Sender: FDA-Public Use
  Company Number: US-MERCK-0510USA03483

PATIENT
  Age: 64 Year
  Sex: Female
  Weight: 70 kg

DRUGS (4)
  1. VIOXX [Suspect]
     Indication: RHEUMATOID ARTHRITIS
     Route: 048
     Dates: start: 20001101, end: 20040801
  2. VIOXX [Suspect]
     Route: 048
     Dates: start: 20001101, end: 20040801
  3. PREDNISONE [Concomitant]
     Route: 065
  4. FOSAMAX [Concomitant]
     Route: 065

REACTIONS (4)
  - ARTHRALGIA [None]
  - CEREBELLAR INFARCTION [None]
  - HAEMATOCHEZIA [None]
  - PNEUMONIA [None]
